FAERS Safety Report 23341599 (Version 2)
Quarter: 2024Q1

REPORT INFORMATION
  Report Type: Spontaneous
  Country: FR (occurrence: FR)
  Receive Date: 20231227
  Receipt Date: 20240220
  Transmission Date: 20240410
  Serious: Yes (Other)
  Sender: FDA-Public Use
  Company Number: FR-002147023-NVSC2023FR273561

PATIENT
  Sex: Male

DRUGS (2)
  1. COSENTYX [Suspect]
     Active Substance: SECUKINUMAB
     Indication: Psoriasis
     Dosage: 300MG/ 2ML
     Route: 065
     Dates: start: 20231215
  2. DUPILUMAB [Concomitant]
     Active Substance: DUPILUMAB
     Indication: Eczema
     Dosage: UNK
     Route: 065

REACTIONS (3)
  - Erysipelas [Unknown]
  - Rash [Unknown]
  - Immunosuppression [Unknown]

NARRATIVE: CASE EVENT DATE: 20231216
